FAERS Safety Report 13375730 (Version 1)
Quarter: 2017Q1

REPORT INFORMATION
  Report Type: Spontaneous
  Country: GB (occurrence: GB)
  Receive Date: 20170328
  Receipt Date: 20170328
  Transmission Date: 20170429
  Serious: Yes (Other)
  Sender: FDA-Public Use
  Company Number: GB-ACCORD-049469

PATIENT
  Age: 50 Year
  Sex: Male
  Weight: 89 kg

DRUGS (10)
  1. SALBUTAMOL [Concomitant]
     Active Substance: ALBUTEROL
     Route: 055
     Dates: start: 20151208
  2. QVAR [Concomitant]
     Active Substance: BECLOMETHASONE DIPROPIONATE
     Dates: start: 20151208, end: 20170306
  3. SITAGLIPTIN/SITAGLIPTIN PHOSPHATE [Concomitant]
     Dates: start: 20151027
  4. MONTELUKAST [Suspect]
     Active Substance: MONTELUKAST SODIUM
     Indication: PRODUCT USED FOR UNKNOWN INDICATION
     Dates: start: 20170306
  5. ATORVASTATIN [Concomitant]
     Active Substance: ATORVASTATIN
     Dates: start: 20151106
  6. CETIRIZINE [Concomitant]
     Active Substance: CETIRIZINE HYDROCHLORIDE
     Dates: start: 20151027
  7. METFORMIN [Concomitant]
     Active Substance: METFORMIN HYDROCHLORIDE
     Dates: start: 20160809
  8. GLICLAZIDE [Concomitant]
     Active Substance: GLICLAZIDE
     Dates: start: 20151027
  9. ASPIRIN. [Concomitant]
     Active Substance: ASPIRIN
     Dates: start: 20151027
  10. FOSTAIR [Concomitant]
     Active Substance: BECLOMETHASONE\FORMOTEROL
     Dates: start: 20170306

REACTIONS (1)
  - Asthma [Unknown]
